FAERS Safety Report 9849264 (Version 1)
Quarter: 2014Q1

REPORT INFORMATION
  Report Type: Spontaneous
  Country: TR (occurrence: None)
  Receive Date: 20140124
  Receipt Date: 20140124
  Transmission Date: 20141002
  Serious: Yes (Hospitalization)
  Sender: FDA-Public Use
  Company Number: 2127929

PATIENT
  Age: 74 Year
  Sex: Female

DRUGS (4)
  1. METHOTREXATE [Suspect]
     Indication: RHEUMATOID ARTHRITIS
     Dosage: 1 WEEK
  2. (FENYRAMIDOL) [Concomitant]
  3. (TELMISARTAN) [Concomitant]
  4. (LEVOTHYROXINE) [Concomitant]

REACTIONS (23)
  - Intervertebral discitis [None]
  - Bone tuberculosis [None]
  - Hypercalcaemia [None]
  - Pancytopenia [None]
  - Aspartate aminotransferase increased [None]
  - Drug level above therapeutic [None]
  - Skin necrosis [None]
  - Renal failure [None]
  - Muscular weakness [None]
  - Lip ulceration [None]
  - Genital ulceration [None]
  - Pyrexia [None]
  - Oral mucosa erosion [None]
  - Lip haemorrhage [None]
  - Scab [None]
  - Skin ulcer [None]
  - Alanine aminotransferase increased [None]
  - C-reactive protein increased [None]
  - Toxicity to various agents [None]
  - Papilloma [None]
  - Psoas abscess [None]
  - Spinal column stenosis [None]
  - Bone marrow granuloma [None]
